FAERS Safety Report 19591039 (Version 4)
Quarter: 2021Q4

REPORT INFORMATION
  Report Type: Spontaneous
  Country: JP (occurrence: JP)
  Receive Date: 20210721
  Receipt Date: 20211104
  Transmission Date: 20220303
  Serious: Yes (Hospitalization, Congenital Anomaly, Other)
  Sender: FDA-Public Use
  Company Number: JP-UCBJ-CD202106480UCBPHAPROD

PATIENT
  Sex: Female
  Weight: 1.632 kg

DRUGS (5)
  1. VIMPAT [Suspect]
     Active Substance: LACOSAMIDE
     Indication: Temporal lobe epilepsy
     Dosage: 150 MILLIGRAM, 2X/DAY (BID)
     Route: 064
     Dates: start: 202009, end: 20210509
  2. VIMPAT [Suspect]
     Active Substance: LACOSAMIDE
     Dosage: 150 MILLIGRAM, 2X/DAY (BID)
     Route: 063
  3. FYCOMPA [Suspect]
     Active Substance: PERAMPANEL
     Indication: Product used for unknown indication
     Dosage: 2 GRAMS A DAY
     Route: 064
     Dates: start: 202009, end: 20210509
  4. FYCOMPA [Suspect]
     Active Substance: PERAMPANEL
     Dosage: 2 GRAMS A DAY
     Route: 063
  5. BELSOMRA [Concomitant]
     Active Substance: SUVOREXANT
     Indication: Product used for unknown indication
     Dosage: UNK
     Route: 064

REACTIONS (7)
  - Gastroschisis [Recovered/Resolved]
  - Premature baby [Unknown]
  - Low birth weight baby [Unknown]
  - Small for dates baby [Unknown]
  - Maternal exposure before pregnancy [Unknown]
  - Maternal exposure during pregnancy [Unknown]
  - Exposure via breast milk [Unknown]

NARRATIVE: CASE EVENT DATE: 20200901
